FAERS Safety Report 6582662-6 (Version None)
Quarter: 2010Q1

REPORT INFORMATION
  Report Type: 
  Country: None (occurrence: None)
  Receive Date: 20100216
  Receipt Date: 20100212
  Transmission Date: 20100710
  Serious: Yes (Life-Threatening)
  Sender: FDA-Public Use
  Company Number: NO-ASTRAZENECA-2010SE06381

PATIENT
  Age: 67 Year
  Sex: Male

DRUGS (3)
  1. LIDOCAINE [Suspect]
     Indication: INFILTRATION ANAESTHESIA
     Route: 065
     Dates: start: 20100126, end: 20100126
  2. DOXYCYCLINE [Suspect]
     Indication: ANTIBIOTIC PROPHYLAXIS
     Dosage: DISSOLVED IN 1000 ML RINGER ACETATE SOLUTION. FEW ML ADMINISTERED BEFORE WITHDRAWAL.
     Dates: start: 20100126, end: 20100126
  3. KLORHEXIDINSPRIT FRESENIUS KABI [Concomitant]
     Indication: INFECTION PROPHYLAXIS
     Dates: start: 20100126

REACTIONS (2)
  - ANAPHYLACTIC SHOCK [None]
  - RESPIRATORY FAILURE [None]
